FAERS Safety Report 20396307 (Version 4)
Quarter: 2022Q2

REPORT INFORMATION
  Report Type: Report from Study
  Country: GR (occurrence: GR)
  Receive Date: 20220130
  Receipt Date: 20220502
  Transmission Date: 20220721
  Serious: Yes (Hospitalization)
  Sender: FDA-Public Use
  Company Number: GR-ABBVIE-22K-066-4253327-00

PATIENT
  Age: 83 Year
  Sex: Male
  Weight: 59 kg

DRUGS (13)
  1. CARBIDOPA\LEVODOPA [Suspect]
     Active Substance: CARBIDOPA\LEVODOPA
     Indication: Parkinson^s disease
     Dosage: MORNING DOSE: 9 ML; CONTINUOUS RATE: 3.8 ML/H; EXTRA DOSE: 1 ML
     Route: 050
     Dates: start: 20210111
  2. CARBIDOPA\LEVODOPA [Suspect]
     Active Substance: CARBIDOPA\LEVODOPA
     Dosage: MORNING DOSE: 9.0ML; CONTINUOUS RATE: 3.8ML/H; EXTRA DOSE: 1.0ML
     Route: 050
  3. NEXIUM [Concomitant]
     Active Substance: ESOMEPRAZOLE MAGNESIUM
     Indication: Product used for unknown indication
     Route: 048
  4. DOMPERIDONE [Concomitant]
     Active Substance: DOMPERIDONE
     Indication: Product used for unknown indication
     Route: 048
  5. EXELON [Concomitant]
     Active Substance: RIVASTIGMINE TARTRATE
     Indication: Product used for unknown indication
     Route: 048
  6. MEMANTINE HYDROCHLORIDE [Concomitant]
     Active Substance: MEMANTINE HYDROCHLORIDE
     Indication: Product used for unknown indication
     Route: 048
  7. MIRABEGRON [Concomitant]
     Active Substance: MIRABEGRON
     Indication: Product used for unknown indication
     Route: 048
  8. JANUVIA [Concomitant]
     Active Substance: SITAGLIPTIN PHOSPHATE
     Indication: Type 2 diabetes mellitus
     Route: 048
  9. GLUCOSTOP [Concomitant]
     Indication: Type 2 diabetes mellitus
     Route: 048
  10. SEROQUEL [Concomitant]
     Active Substance: QUETIAPINE FUMARATE
     Indication: Product used for unknown indication
     Route: 048
  11. ZOLOFT [Concomitant]
     Active Substance: SERTRALINE HYDROCHLORIDE
     Indication: Product used for unknown indication
     Route: 048
  12. MIDODRINE HYDROCHLORIDE [Concomitant]
     Active Substance: MIDODRINE HYDROCHLORIDE
     Indication: Blood pressure management
     Dosage: 2.5MG
     Route: 048
  13. BENSERAZIDE HYDROCHLORIDE\LEVODOPA [Concomitant]
     Active Substance: BENSERAZIDE HYDROCHLORIDE\LEVODOPA
     Indication: Product used for unknown indication
     Dosage: (200+50)MG, 3/4X1 (WHEN THE PUMP CLOSES AT NIGHT)
     Route: 048

REACTIONS (3)
  - Cerebrovascular accident [Not Recovered/Not Resolved]
  - Bedridden [Not Recovered/Not Resolved]
  - Communication disorder [Not Recovered/Not Resolved]

NARRATIVE: CASE EVENT DATE: 20220117
